FAERS Safety Report 8657691 (Version 7)
Quarter: 2012Q4

REPORT INFORMATION
  Report Type: 
  Country: JP (occurrence: JP)
  Receive Date: 20120710
  Receipt Date: 20121212
  Transmission Date: 20130627
  Serious: Yes (Hospitalization, Other)
  Sender: FDA-Public Use
  Company Number: JP-JNJFOC-20120701514

PATIENT
  Age: 77 Year
  Sex: Male

DRUGS (6)
  1. TRAMCET [Suspect]
     Indication: PAIN
     Dosage: 1 per 1 day
     Route: 048
     Dates: start: 20120607
  2. TRAMCET [Suspect]
     Indication: PAIN
     Dosage: 1 per 1 day
     Route: 048
     Dates: start: 20120308, end: 20120405
  3. TRAMCET [Suspect]
     Indication: PAIN
     Dosage: 1 per 1 day
     Route: 048
     Dates: start: 20120424, end: 20120513
  4. DICLOFENAC SODIUM [Suspect]
     Indication: PAIN MANAGEMENT
     Dosage: 1 per 1 day
     Route: 048
  5. TAKEPRON [Suspect]
     Indication: PRODUCT USED FOR UNKNOWN INDICATION
     Dosage: 1 per 1 day
     Route: 048
  6. VOLTAREN [Concomitant]
     Route: 065

REACTIONS (6)
  - Large intestinal ulcer [Unknown]
  - Small intestine ulcer [Unknown]
  - Diarrhoea [Recovered/Resolved]
  - Gastrointestinal mucosal disorder [Unknown]
  - Blood creatinine increased [Unknown]
  - Blister [Recovered/Resolved]
